FAERS Safety Report 16841686 (Version 1)
Quarter: 2019Q3

REPORT INFORMATION
  Report Type: Spontaneous
  Country: US (occurrence: US)
  Receive Date: 20190923
  Receipt Date: 20190923
  Transmission Date: 20191005
  Serious: No
  Sender: FDA-Public Use
  Company Number: US-TARO-2019TAR00238

PATIENT
  Sex: Female

DRUGS (1)
  1. LIDOCAINE OINTMENT USP 5% TUBE (UNFLAVORED) [Suspect]
     Active Substance: LIDOCAINE

REACTIONS (1)
  - Anorectal discomfort [Unknown]
